FAERS Safety Report 5595686-2 (Version None)
Quarter: 2008Q1

REPORT INFORMATION
  Report Type: 
  Country: None (occurrence: None)
  Receive Date: 20080118
  Receipt Date: 20080115
  Transmission Date: 20080703
  Serious: Yes (Other)
  Sender: FDA-Public Use
  Company Number: PHRM2007FR02735

PATIENT
  Sex: Male
  Weight: 70 kg

DRUGS (2)
  1. ZOMETA [Suspect]
     Indication: METASTASES TO BONE
     Dosage: 4 MG, QMO
     Route: 042
     Dates: start: 20050101, end: 20071101
  2. NAVELBINE [Suspect]
     Indication: PROSTATE CANCER METASTATIC

REACTIONS (5)
  - BONE DISORDER [None]
  - BONE EROSION [None]
  - OSTEONECROSIS [None]
  - PERIODONTAL DISEASE [None]
  - ULCER [None]
